FAERS Safety Report 12181481 (Version 2)
Quarter: 2016Q2

REPORT INFORMATION
  Report Type: Report from Study
  Country: US (occurrence: US)
  Receive Date: 20160315
  Receipt Date: 20160413
  Transmission Date: 20160815
  Serious: Yes (Death)
  Sender: FDA-Public Use
  Company Number: US-ACTELION-A-US2016-132639

PATIENT
  Age: 89 Year
  Sex: Male

DRUGS (1)
  1. MECHLORETHAMINE [Suspect]
     Active Substance: MECHLORETHAMINE
     Indication: MYCOSIS FUNGOIDES
     Dosage: UNK
     Route: 061
     Dates: start: 201511, end: 201512

REACTIONS (2)
  - Disease progression [Fatal]
  - Mycosis fungoides [Fatal]
